FAERS Safety Report 8979184 (Version 2)
Quarter: 2013Q1

REPORT INFORMATION
  Report Type: Spontaneous
  Country: US (occurrence: US)
  Receive Date: 20121221
  Receipt Date: 20130131
  Transmission Date: 20140127
  Serious: Yes (Other)
  Sender: FDA-Public Use
  Company Number: US-PFIZER INC-2012323446

PATIENT
  Age: 68 Year
  Sex: Female
  Weight: 72.56 kg

DRUGS (5)
  1. PRISTIQ [Suspect]
     Indication: FATIGUE
     Dosage: 50 MG, DAILY
     Route: 048
     Dates: start: 2012
  2. PRISTIQ [Suspect]
     Indication: FEELING ABNORMAL
     Dosage: 50 MG, DAILY
     Route: 048
  3. TRAMADOL HCL [Suspect]
     Indication: PAIN
     Dosage: 20 MG, 2X/DAY
     Route: 048
     Dates: start: 2011, end: 201212
  4. MOBIC [Suspect]
     Indication: ARTHRITIS
     Dosage: UNK
  5. LEVOTHYROXINE [Concomitant]
     Indication: THYROID DISORDER
     Dosage: 0.075 MG, DAILY
     Route: 048

REACTIONS (16)
  - Off label use [Unknown]
  - Expired drug administered [Unknown]
  - Fatigue [Unknown]
  - Disorientation [Unknown]
  - Malaise [Unknown]
  - Asthenia [Recovered/Resolved]
  - Feeling abnormal [Recovered/Resolved]
  - Nausea [Unknown]
  - Restlessness [Unknown]
  - Middle insomnia [Unknown]
  - Abnormal dreams [Unknown]
  - Frustration [Unknown]
  - Anxiety [Unknown]
  - Nervousness [Unknown]
  - Euphoric mood [Unknown]
  - Drug intolerance [Unknown]
